FAERS Safety Report 9658988 (Version 1)
Quarter: 2013Q4

REPORT INFORMATION
  Report Type: Spontaneous
  Country: US (occurrence: US)
  Receive Date: 20131031
  Receipt Date: 20131031
  Transmission Date: 20140711
  Serious: Yes (Hospitalization)
  Sender: FDA-Public Use
  Company Number: US-DRREDDYS-USA/USA/13/0035251

PATIENT
  Age: 13 Year
  Sex: Male

DRUGS (4)
  1. AMOXICILLIN W/CLAVULANATE POTASSIUM [Suspect]
     Indication: SOFT TISSUE INFECTION
     Route: 065
  2. CLINDAMYCIN [Suspect]
     Indication: OSTEOMYELITIS
     Route: 065
  3. VANCOMYCIN [Suspect]
     Indication: OSTEOMYELITIS
     Route: 065
  4. CEFEPIME [Suspect]
     Indication: OSTEOMYELITIS
     Route: 042

REACTIONS (2)
  - Tubulointerstitial nephritis [Recovering/Resolving]
  - Renal failure [Recovering/Resolving]
